FAERS Safety Report 10655013 (Version 1)
Quarter: 2014Q4

REPORT INFORMATION
  Report Type: Spontaneous
  Country: US (occurrence: US)
  Receive Date: 20141216
  Receipt Date: 20141216
  Transmission Date: 20150529
  Serious: Yes (Hospitalization, Other)
  Sender: FDA-Public Use
  Company Number: US-TEVA-521572USA

PATIENT
  Age: 72 Year
  Sex: Female
  Weight: 81.72 kg

DRUGS (7)
  1. LISINOPRIL. [Concomitant]
     Active Substance: LISINOPRIL
     Indication: BLOOD PRESSURE ABNORMAL
     Dosage: 20 MILLIGRAM DAILY;
     Route: 048
  2. SUCRALFATE. [Suspect]
     Active Substance: SUCRALFATE
     Indication: GASTRIC DISORDER
     Route: 065
  3. PREMARIN VAGINAL [Suspect]
     Active Substance: ESTROGENS, CONJUGATED
     Indication: INFECTION
  4. PREMARIN VAGINAL [Suspect]
     Active Substance: ESTROGENS, CONJUGATED
     Indication: PRURITUS
     Route: 067
     Dates: start: 2013, end: 2013
  5. SIMVASTATIN. [Concomitant]
     Active Substance: SIMVASTATIN
     Indication: BLOOD CHOLESTEROL ABNORMAL
     Dosage: 20 MILLIGRAM DAILY;
     Route: 048
  6. ELIQUIS [Suspect]
     Active Substance: APIXABAN
     Indication: ANTICOAGULANT THERAPY
     Route: 065
  7. OMEPRAZOLE. [Concomitant]
     Active Substance: OMEPRAZOLE
     Indication: GASTRIC DISORDER
     Dosage: 20 MILLIGRAM DAILY;
     Route: 048

REACTIONS (7)
  - Muscular weakness [Not Recovered/Not Resolved]
  - Cardiac flutter [Unknown]
  - Vulvovaginal pruritus [Not Recovered/Not Resolved]
  - Dysuria [Not Recovered/Not Resolved]
  - Heart rate increased [Unknown]
  - Faeces discoloured [Recovering/Resolving]
  - Abdominal pain upper [Recovered/Resolved]

NARRATIVE: CASE EVENT DATE: 2013
